FAERS Safety Report 4490908-3 (Version None)
Quarter: 2004Q4

REPORT INFORMATION
  Report Type: 
  Country: None (occurrence: None)
  Receive Date: 20041027
  Receipt Date: 20041014
  Transmission Date: 20050328
  Serious: Yes (Hospitalization)
  Sender: FDA-Public Use
  Company Number: 2004-BP-09946RO

PATIENT
  Age: 38 Year
  Sex: Female

DRUGS (4)
  1. METHADONE HCL [Suspect]
     Indication: DRUG ABUSER
     Dosage: 30 MG  : 120 MG/DAY (LAST 2 DAYS)
  2. ASPIRIN [Concomitant]
  3. INSULIN [Concomitant]
  4. PROZAC [Concomitant]

REACTIONS (5)
  - DIZZINESS [None]
  - NAUSEA [None]
  - TORSADE DE POINTES [None]
  - TROPONIN I INCREASED [None]
  - VOMITING [None]
